FAERS Safety Report 6045703-0 (Version None)
Quarter: 2009Q1

REPORT INFORMATION
  Report Type: 
  Country: None (occurrence: None)
  Receive Date: 20090121
  Receipt Date: 20090115
  Transmission Date: 20090719
  Serious: Yes (Death, Hospitalization, Disabling, Other)
  Sender: FDA-Public Use
  Company Number: US-BAYER-200818658NA

PATIENT
  Sex: Male
  Weight: 81 kg

DRUGS (32)
  1. MAGNEVIST [Suspect]
     Indication: ANGIOGRAM
     Dates: start: 20050923, end: 20050923
  2. OMNISCAN [Suspect]
  3. OPTIMARK [Suspect]
  4. MULTIHANCE [Suspect]
  5. PROHANCE [Suspect]
  6. ROCEPHIN [Concomitant]
  7. VALCYTE [Concomitant]
     Dosage: TOTAL DAILY DOSE: 450 MG
     Route: 048
  8. REGLAN [Concomitant]
     Dosage: TOTAL DAILY DOSE: 40 MG
     Route: 048
  9. PROGRAF [Concomitant]
     Dosage: TOTAL DAILY DOSE: 1.0 MG
     Route: 048
  10. PROGRAF [Concomitant]
     Dosage: TOTAL DAILY DOSE: 2 MG
     Route: 048
  11. PROGRAF [Concomitant]
     Dosage: TOTAL DAILY DOSE: 10 MG
     Route: 048
  12. MAGNESIUM SULFATE [Concomitant]
     Dosage: TOTAL DAILY DOSE: 1600 MG  UNIT DOSE: 400 MG
     Route: 048
  13. LEXAPRO [Concomitant]
     Dosage: TOTAL DAILY DOSE: 20 MG
     Route: 048
  14. LEXAPRO [Concomitant]
     Dosage: TOTAL DAILY DOSE: 10 MG
     Route: 048
  15. CELLCEPT [Concomitant]
     Dosage: TOTAL DAILY DOSE: 2000 MG  UNIT DOSE: 500 MG
     Route: 048
  16. PROTONIX [Concomitant]
     Dosage: TOTAL DAILY DOSE: 40 MG
     Route: 048
  17. HYDROCODONE BITARTRATE [Concomitant]
     Dosage: UNIT DOSE: 10 MG
     Route: 048
  18. OXYCODONE [Concomitant]
     Dosage: TOTAL DAILY DOSE: 20 MG
     Route: 048
  19. ELAVIL [Concomitant]
     Dosage: TOTAL DAILY DOSE: 25 MG
     Route: 048
  20. ELAVIL [Concomitant]
     Dosage: TOTAL DAILY DOSE: 50 MG
  21. GABAPENTIN [Concomitant]
     Dosage: TOTAL DAILY DOSE: 1200 MG
     Route: 048
  22. SENNA [Concomitant]
     Route: 048
  23. LASIX [Concomitant]
     Route: 042
  24. LASIX [Concomitant]
     Dosage: TOTAL DAILY DOSE: 80 MG
     Route: 048
  25. VICODIN [Concomitant]
     Route: 048
  26. NEURONTIN [Concomitant]
     Dosage: TOTAL DAILY DOSE: 600 MG
     Route: 048
  27. PRAVASTATIN [Concomitant]
     Dosage: TOTAL DAILY DOSE: 10 MG
  28. GANCICLOVIR [Concomitant]
     Indication: INFECTION PROPHYLAXIS
     Dosage: TOTAL DAILY DOSE: 450 MG
  29. GLIPIZIDE [Concomitant]
     Dosage: TOTAL DAILY DOSE: 10 MG
  30. POTASSIUM PHOSPHATES [Concomitant]
     Route: 048
  31. SEPTRA [Concomitant]
  32. AZITHROMYCIN [Concomitant]

REACTIONS (18)
  - ANHEDONIA [None]
  - ANXIETY [None]
  - DYSSTASIA [None]
  - EMOTIONAL DISTRESS [None]
  - ERYTHEMA [None]
  - EXTREMITY CONTRACTURE [None]
  - INJURY [None]
  - LIMB DISCOMFORT [None]
  - MOBILITY DECREASED [None]
  - MUSCULAR WEAKNESS [None]
  - MYALGIA [None]
  - NEPHROGENIC SYSTEMIC FIBROSIS [None]
  - OEDEMA PERIPHERAL [None]
  - PAIN [None]
  - SCAR [None]
  - SKIN LESION [None]
  - SKIN TIGHTNESS [None]
  - SKIN ULCER [None]
